FAERS Safety Report 4303339-3 (Version None)
Quarter: 2004Q1

REPORT INFORMATION
  Report Type: 
  Country: None (occurrence: None)
  Receive Date: 20040223
  Receipt Date: 20040209
  Transmission Date: 20041129
  Serious: Yes (Other)
  Sender: FDA-Public Use
  Company Number: CA-JNJFOC-20031103750

PATIENT
  Age: 51 Year
  Sex: Male
  Weight: 55 kg

DRUGS (9)
  1. REMICADE [Suspect]
     Indication: CROHN'S DISEASE
     Dosage: 300 MG, INTRAVENOUS
     Route: 042
     Dates: start: 20030311, end: 20030922
  2. AZATHIOPRINE [Suspect]
     Indication: CROHN'S DISEASE
  3. CODEINE (CODEINE) [Concomitant]
  4. SALOFALK (AMINOSALICYLIC ACID) [Concomitant]
  5. THYROXIN (LEVOTHYROXINE SODIUM) [Concomitant]
  6. IRON (IRON) [Concomitant]
  7. DEMEROL [Concomitant]
  8. ZOPICLONE (ZOPICLONE) [Concomitant]
  9. CYCLOBENZAPRINE HCL [Concomitant]

REACTIONS (7)
  - AMYOTROPHIC LATERAL SCLEROSIS [None]
  - DEMYELINATING POLYNEUROPATHY [None]
  - LIMB INJURY [None]
  - NERVE CONDUCTION STUDIES NORMAL [None]
  - PERIPHERAL MOTOR NEUROPATHY [None]
  - TREATMENT NONCOMPLIANCE [None]
  - VASCULITIS [None]
